FAERS Safety Report 11356751 (Version 1)
Quarter: 2015Q3

REPORT INFORMATION
  Report Type: Spontaneous
  Country: US (occurrence: US)
  Receive Date: 20150803
  Receipt Date: 20150803
  Transmission Date: 20151125
  Serious: No
  Sender: FDA-Public Use
  Company Number: US-ELI_LILLY_AND_COMPANY-US201210009140

PATIENT
  Age: 29 Year
  Sex: Female

DRUGS (3)
  1. ZYPREXA [Suspect]
     Active Substance: OLANZAPINE
     Indication: SCHIZOPHRENIA, PARANOID TYPE
     Dosage: 10 MG, EACH EVENING
     Dates: start: 20120907
  2. ZYPREXA [Suspect]
     Active Substance: OLANZAPINE
     Dosage: 20 MG, EACH EVENING
  3. ZYPREXA [Suspect]
     Active Substance: OLANZAPINE
     Dosage: 5 MG, BID

REACTIONS (3)
  - Postmature baby [Recovered/Resolved]
  - Prescribed overdose [Not Recovered/Not Resolved]
  - Exposure during pregnancy [Recovered/Resolved]

NARRATIVE: CASE EVENT DATE: 20120907
